FAERS Safety Report 6940502-7 (Version None)
Quarter: 2010Q3

REPORT INFORMATION
  Report Type: 
  Country: None (occurrence: None)
  Receive Date: 20100825
  Receipt Date: 20100819
  Transmission Date: 20110219
  Serious: Yes (Other)
  Sender: FDA-Public Use
  Company Number: US-SANOFI-AVENTIS-2010SA049748

PATIENT
  Age: 68 Year
  Sex: Male

DRUGS (2)
  1. LANTUS [Suspect]
     Indication: TYPE 2 DIABETES MELLITUS
     Dosage: 23 UNITS IN MORNING AND 40U IN EVENING
     Route: 058
     Dates: start: 20050101
  2. SOLOSTAR [Suspect]

REACTIONS (2)
  - PARKINSON'S DISEASE [None]
  - TREMOR [None]
